FAERS Safety Report 6388991-3 (Version None)
Quarter: 2009Q4

REPORT INFORMATION
  Report Type: 
  Country: None (occurrence: None)
  Receive Date: 20091001
  Receipt Date: 20090922
  Transmission Date: 20100525
  Serious: Yes (Hospitalization)
  Sender: FDA-Public Use
  Company Number: ADR27542009

PATIENT
  Age: 68 Year
  Sex: Male

DRUGS (7)
  1. RAMIPRIL [Suspect]
     Dosage: 2.5 MG, ORAL
     Route: 048
     Dates: start: 20070614, end: 20070621
  2. ABCIXIMAB [Concomitant]
  3. CLOPIDOGREL [Concomitant]
  4. ASPIRIN [Concomitant]
  5. LANSOPRAZOLE [Concomitant]
  6. METOPROLOL [Concomitant]
  7. SIMVASTATIN [Concomitant]

REACTIONS (2)
  - HAEMATURIA [None]
  - THROMBOCYTOPENIA [None]
